FAERS Safety Report 4533056-6 (Version None)
Quarter: 2004Q4

REPORT INFORMATION
  Report Type: 
  Country: None (occurrence: None)
  Receive Date: 20041221
  Receipt Date: 20041015
  Transmission Date: 20050328
  Serious: Yes (Hospitalization, Other)
  Sender: FDA-Public Use
  Company Number: 200417918US

PATIENT
  Age: 75 Year
  Sex: Female

DRUGS (8)
  1. LANTUS [Suspect]
     Indication: DIABETES MELLITUS NON-INSULIN-DEPENDENT
     Dosage: DOSE UNIT: UNITS
  2. FOLIC ACID [Concomitant]
     Dosage: DOSE: UNK
  3. VITAMIN B COMPLEX CAP [Concomitant]
     Dosage: DOSE: UNK
  4. COUMADIN [Concomitant]
     Dosage: DOSE: UNK
  5. KLONOPIN [Concomitant]
     Dosage: DOSE: UNK
  6. HALDOL [Concomitant]
     Dosage: DOSE: UNK
  7. PROTONIX [Concomitant]
     Dosage: DOSE: UNK
  8. PHOSLO [Concomitant]
     Dosage: DOSE: UNK

REACTIONS (3)
  - BLOOD GLUCOSE FLUCTUATION [None]
  - MALAISE [None]
  - SEPSIS [None]
